FAERS Safety Report 21416645 (Version 3)
Quarter: 2022Q4

REPORT INFORMATION
  Report Type: Spontaneous
  Country: US (occurrence: US)
  Receive Date: 20221006
  Receipt Date: 20221118
  Transmission Date: 20230112
  Serious: No
  Sender: FDA-Public Use
  Company Number: US-BIOVITRUM-2022US11380

PATIENT
  Sex: Female

DRUGS (3)
  1. DOPTELET [Suspect]
     Active Substance: AVATROMBOPAG MALEATE
     Indication: Product used for unknown indication
  2. DOPTELET [Suspect]
     Active Substance: AVATROMBOPAG MALEATE
  3. PREDNISONE [Suspect]
     Active Substance: PREDNISONE
     Indication: Product used for unknown indication
     Dosage: DECREASED TO 5 MG

REACTIONS (3)
  - Platelet count abnormal [Unknown]
  - Platelet count decreased [Unknown]
  - Drug ineffective [Unknown]
